FAERS Safety Report 21781003 (Version 6)
Quarter: 2023Q4

REPORT INFORMATION
  Report Type: Report from Study
  Country: US (occurrence: US)
  Receive Date: 20221227
  Receipt Date: 20231106
  Transmission Date: 20240110
  Serious: Yes (Other)
  Sender: FDA-Public Use
  Company Number: US-ABBVIE-4246841

PATIENT
  Sex: Female

DRUGS (6)
  1. SKYRIZI [Suspect]
     Active Substance: RISANKIZUMAB-RZAA
     Indication: Psoriasis
     Dosage: TIME INTERVAL: TOTAL: WEEK 4, FROM STRENGTH: 150 MG
     Route: 058
     Dates: start: 20220823, end: 20220823
  2. SKYRIZI [Suspect]
     Active Substance: RISANKIZUMAB-RZAA
     Dosage: TIME INTERVAL: TOTAL: WEEK 0, FROM STRENGTH: 150 MG
     Route: 058
     Dates: start: 20220723, end: 20220723
  3. SKYRIZI [Suspect]
     Active Substance: RISANKIZUMAB-RZAA
     Dosage: FORM STRENGTH: 150 MG
     Route: 058
     Dates: start: 20230207, end: 20230207
  4. SKYRIZI [Suspect]
     Active Substance: RISANKIZUMAB-RZAA
     Dosage: FORM STRENGTH: 150 MG
     Route: 058
     Dates: start: 20230510
  5. SKYRIZI [Suspect]
     Active Substance: RISANKIZUMAB-RZAA
     Route: 058
  6. SKYRIZI [Suspect]
     Active Substance: RISANKIZUMAB-RZAA
     Dosage: FORM STRENGTH: 150 MILLIGRAM
     Route: 058
     Dates: start: 2022

REACTIONS (11)
  - Bone graft [Unknown]
  - Drug ineffective [Unknown]
  - Injection site bruising [Unknown]
  - Tooth extraction [Unknown]
  - Psoriasis [Not Recovered/Not Resolved]
  - Tooth fracture [Unknown]
  - Hot flush [Unknown]
  - Endodontic procedure [Unknown]
  - Therapeutic response shortened [Unknown]
  - Post procedural infection [Unknown]
  - Osteomyelitis [Unknown]

NARRATIVE: CASE EVENT DATE: 20220101
